FAERS Safety Report 11120718 (Version 1)
Quarter: 2015Q2

REPORT INFORMATION
  Report Type: Spontaneous
  Country: US (occurrence: US)
  Receive Date: 20150519
  Receipt Date: 20150519
  Transmission Date: 20150821
  Serious: No
  Sender: FDA-Public Use
  Company Number: US-BAYER-2015-190917

PATIENT
  Age: 49 Year
  Sex: Female
  Weight: 99.32 kg

DRUGS (1)
  1. MIRALAX [Suspect]
     Active Substance: POLYETHYLENE GLYCOL 3350
     Indication: CONSTIPATION
     Dosage: 1 UNIT,QOD
     Route: 048
     Dates: end: 20150430

REACTIONS (2)
  - Incorrect drug administration duration [None]
  - Medication error [None]
